FAERS Safety Report 12697392 (Version 1)
Quarter: 2016Q3

REPORT INFORMATION
  Report Type: Spontaneous
  Country: US (occurrence: None)
  Receive Date: 20160829
  Receipt Date: 20160829
  Transmission Date: 20161109
  Serious: Yes (Other)
  Sender: FDA-Public Use
  Company Number: None

PATIENT
  Age: 62 Year
  Sex: Female
  Weight: 56.7 kg

DRUGS (1)
  1. WELLBUTRIN XL [Suspect]
     Active Substance: BUPROPION HYDROCHLORIDE
     Indication: EX-TOBACCO USER
     Route: 048
     Dates: start: 20160810, end: 20160826

REACTIONS (7)
  - Confusional state [None]
  - Mood swings [None]
  - Eye pain [None]
  - Constipation [None]
  - Headache [None]
  - Ocular hyperaemia [None]
  - Abdominal discomfort [None]

NARRATIVE: CASE EVENT DATE: 20160825
